FAERS Safety Report 5950395-2 (Version None)
Quarter: 2008Q4

REPORT INFORMATION
  Report Type: 
  Country: None (occurrence: None)
  Receive Date: 20081112
  Receipt Date: 20081110
  Transmission Date: 20090506
  Serious: Yes (Death, Hospitalization)
  Sender: FDA-Public Use
  Company Number: PHBS2008TR06271

PATIENT
  Age: 25 Year
  Sex: Male

DRUGS (5)
  1. CYCLOSPORINE [Suspect]
     Indication: BEHCET'S SYNDROME
     Dosage: 100 MG, TID
  2. CYCLOSPORINE [Suspect]
     Indication: PNEUMONIA
  3. PREDNISONE TAB [Concomitant]
  4. METHYLPREDNISOLONE 16MG TAB [Concomitant]
     Indication: BEHCET'S SYNDROME
     Dosage: 16 MG/DAY
  5. AZATHIOPRINE [Concomitant]
     Indication: BEHCET'S SYNDROME
     Dosage: 50 MG, TID

REACTIONS (9)
  - ABSCESS [None]
  - CANDIDIASIS [None]
  - HAEMODIALYSIS [None]
  - HAEMOGLOBIN DECREASED [None]
  - NOCARDIOSIS [None]
  - PNEUMONITIS [None]
  - PULMONARY EMBOLISM [None]
  - RENAL FAILURE ACUTE [None]
  - SOFT TISSUE INFECTION [None]
